FAERS Safety Report 19079949 (Version 1)
Quarter: 2021Q1

REPORT INFORMATION
  Report Type: Spontaneous
  Country: DE (occurrence: DE)
  Receive Date: 20210331
  Receipt Date: 20210331
  Transmission Date: 20210420
  Serious: Yes (Death)
  Sender: FDA-Public Use
  Company Number: NVSC2021DE072706

PATIENT
  Sex: Male
  Weight: 85 kg

DRUGS (2)
  1. TRAMETINIB [Suspect]
     Active Substance: TRAMETINIB
     Indication: NON-SMALL CELL LUNG CANCER
     Dosage: 2 MG
     Route: 065
     Dates: start: 20201104, end: 20201113
  2. DABRAFENIB [Suspect]
     Active Substance: DABRAFENIB
     Indication: NON-SMALL CELL LUNG CANCER
     Dosage: 300 MG, QD
     Route: 065
     Dates: start: 20201104, end: 20201113

REACTIONS (4)
  - Neoplasm [Fatal]
  - Dehydration [Fatal]
  - Confusional state [Fatal]
  - General physical health deterioration [Fatal]
